FAERS Safety Report 23065424 (Version 2)
Quarter: 2023Q4

REPORT INFORMATION
  Report Type: Report from Study
  Country: JP (occurrence: None)
  Receive Date: 20231013
  Receipt Date: 20231017
  Transmission Date: 20240110
  Serious: Yes (Life-Threatening, Hospitalization, Disabling, Other)
  Sender: FDA-Public Use
  Company Number: 2023A231768

PATIENT
  Age: 72 Year
  Sex: Male
  Weight: 54 kg

DRUGS (2)
  1. IMFINZI [Suspect]
     Active Substance: DURVALUMAB
     Indication: Hepatocellular carcinoma
     Route: 041
     Dates: start: 20230501, end: 20230530
  2. IMJUDO [Suspect]
     Active Substance: TREMELIMUMAB\TREMELIMUMAB-ACTL
     Indication: Hepatocellular carcinoma
     Route: 041
     Dates: start: 20230501, end: 20230501

REACTIONS (6)
  - Immune-mediated dermatitis [Recovering/Resolving]
  - Immune-mediated hepatic disorder [Recovering/Resolving]
  - Pyrexia [Recovering/Resolving]
  - Neutrophil count decreased [Recovering/Resolving]
  - Hypopituitarism [Recovering/Resolving]
  - Immune-mediated adrenal insufficiency [Recovering/Resolving]

NARRATIVE: CASE EVENT DATE: 20230515
